FAERS Safety Report 17609387 (Version 7)
Quarter: 2020Q2

REPORT INFORMATION
  Report Type: Spontaneous
  Country: US (occurrence: US)
  Receive Date: 20200401
  Receipt Date: 20200415
  Transmission Date: 20200713
  Serious: Yes (Disabling, Other)
  Sender: FDA-Public Use
  Company Number: NVSC2020US085544

PATIENT
  Age: 70 Year
  Sex: Female

DRUGS (5)
  1. BEOVU [Suspect]
     Active Substance: BROLUCIZUMAB-DBLL
     Dosage: 6 MG, UNKNOWN
     Route: 047
     Dates: start: 20200320
  2. BEOVU [Suspect]
     Active Substance: BROLUCIZUMAB-DBLL
     Dosage: 6 MG
     Route: 047
     Dates: start: 20200320
  3. BEOVU [Suspect]
     Active Substance: BROLUCIZUMAB-DBLL
     Dosage: 6 MG
     Route: 047
     Dates: start: 20191206, end: 20200320
  4. BEOVU [Suspect]
     Active Substance: BROLUCIZUMAB-DBLL
     Dosage: 6 MG, UNKNOWN
     Route: 047
     Dates: start: 20200117
  5. BEOVU [Suspect]
     Active Substance: BROLUCIZUMAB-DBLL
     Indication: NEOVASCULAR AGE-RELATED MACULAR DEGENERATION
     Dosage: 6 MG
     Route: 047
     Dates: start: 20191206

REACTIONS (5)
  - Visual acuity reduced transiently [Not Recovered/Not Resolved]
  - Vitritis [Not Recovered/Not Resolved]
  - Vitreous floaters [Unknown]
  - Iritis [Not Recovered/Not Resolved]
  - Uveitis [Unknown]

NARRATIVE: CASE EVENT DATE: 20200321
